FAERS Safety Report 12960985 (Version 2)
Quarter: 2017Q3

REPORT INFORMATION
  Report Type: Spontaneous
  Country: AU (occurrence: AU)
  Receive Date: 20161121
  Receipt Date: 20170927
  Transmission Date: 20171127
  Serious: Yes (Other)
  Sender: FDA-Public Use
  Company Number: PHHY2016AU155284

PATIENT
  Sex: Male

DRUGS (2)
  1. ZYKADIA [Suspect]
     Active Substance: CERITINIB
     Indication: LUNG ADENOCARCINOMA
     Dosage: 750 MG, QD
     Route: 065
     Dates: start: 20141128
  2. ZYKADIA [Suspect]
     Active Substance: CERITINIB
     Indication: NON-SMALL CELL LUNG CANCER

REACTIONS (21)
  - Encephalomalacia [Unknown]
  - Metastases to the mediastinum [Unknown]
  - Dyspnoea [Unknown]
  - Blood bilirubin increased [Unknown]
  - Testis cancer [Unknown]
  - Seizure [Unknown]
  - Coordination abnormal [Unknown]
  - Cerebral calcification [Unknown]
  - Aspartate aminotransferase increased [Unknown]
  - Vasogenic cerebral oedema [Unknown]
  - Hemiparesis [Unknown]
  - Lung adenocarcinoma [Unknown]
  - Metastases to lung [Unknown]
  - Malignant neoplasm progression [Unknown]
  - Haemorrhage [Unknown]
  - Intussusception [Unknown]
  - Metastases to central nervous system [Unknown]
  - Metastasis [Unknown]
  - Metastases to testicle [Unknown]
  - Blood creatine increased [Unknown]
  - Therapy partial responder [Unknown]

NARRATIVE: CASE EVENT DATE: 20160524
